FAERS Safety Report 10261407 (Version 1)
Quarter: 2014Q2

REPORT INFORMATION
  Report Type: Spontaneous
  Country: FR (occurrence: FR)
  Receive Date: 20140626
  Receipt Date: 20140626
  Transmission Date: 20141212
  Serious: Yes (Other)
  Sender: FDA-Public Use
  Company Number: FR-009507513-1406FRA010212

PATIENT
  Age: 33 Year
  Sex: Female

DRUGS (4)
  1. NEXPLANON [Suspect]
     Indication: CONTRACEPTION
     Dosage: UNK
     Dates: start: 20140421
  2. DETENSIEL [Concomitant]
     Indication: HYPERTENSION
     Dosage: UNK
     Route: 048
  3. TRIATEC (RAMIPRIL) [Concomitant]
     Indication: HYPERTENSION
     Dosage: UNK
     Route: 048
  4. REBIF [Concomitant]
     Indication: MULTIPLE SCLEROSIS
     Dosage: UNK
     Dates: start: 2005

REACTIONS (14)
  - Monoplegia [Not Recovered/Not Resolved]
  - Varicose vein [Not Recovered/Not Resolved]
  - Chest pain [Not Recovered/Not Resolved]
  - Device difficult to use [Not Recovered/Not Resolved]
  - Device deployment issue [Not Recovered/Not Resolved]
  - Decreased appetite [Not Recovered/Not Resolved]
  - Dyspnoea [Not Recovered/Not Resolved]
  - Implant site pain [Not Recovered/Not Resolved]
  - Cold sweat [Not Recovered/Not Resolved]
  - Abdominal pain upper [Not Recovered/Not Resolved]
  - Hot flush [Not Recovered/Not Resolved]
  - Medical device complication [Not Recovered/Not Resolved]
  - Pain [Not Recovered/Not Resolved]
  - Vomiting [Not Recovered/Not Resolved]
